FAERS Safety Report 12342185 (Version 1)
Quarter: 2016Q2

REPORT INFORMATION
  Report Type: Spontaneous
  Country: US (occurrence: US)
  Receive Date: 20160506
  Receipt Date: 20160506
  Transmission Date: 20160815
  Serious: No
  Sender: FDA-Public Use
  Company Number: US-ANACOR-2016ANA00108

PATIENT
  Sex: Female

DRUGS (4)
  1. UNSPECIFIED ALLERGY EYE DROPS [Concomitant]
  2. KERYDIN [Suspect]
     Active Substance: TAVABOROLE
     Dosage: 1 GTT, ONCE
     Route: 031
     Dates: start: 20160317, end: 20160317
  3. UNSPECIFIED MEDICATIONS [Concomitant]
     Active Substance: UNSPECIFIED INGREDIENT
  4. KERYDIN [Suspect]
     Active Substance: TAVABOROLE
     Indication: ONYCHOMYCOSIS
     Dosage: 1 GTT, 1X/DAY
     Route: 061
     Dates: start: 201601

REACTIONS (4)
  - Drug ineffective [Not Recovered/Not Resolved]
  - Application site pain [Recovering/Resolving]
  - Accidental exposure to product [Recovered/Resolved]
  - Application site irritation [Recovering/Resolving]

NARRATIVE: CASE EVENT DATE: 201601
